FAERS Safety Report 4967386-0 (Version None)
Quarter: 2006Q2

REPORT INFORMATION
  Report Type: 
  Country: None (occurrence: None)
  Receive Date: 20060404
  Receipt Date: 20060320
  Transmission Date: 20061013
  Serious: Yes (Other)
  Sender: FDA-Public Use
  Company Number: S06-GER-01017-01

PATIENT
  Age: 29 Year
  Sex: Female

DRUGS (1)
  1. CIPRALEX (ESCITALOPRAM) [Suspect]
     Dosage: 20 MG DAILY PO
     Route: 048
     Dates: start: 20030101

REACTIONS (7)
  - CAESAREAN SECTION [None]
  - CERVICAL INCOMPETENCE [None]
  - COMPLICATION OF PREGNANCY [None]
  - DRUG EXPOSURE BEFORE PREGNANCY [None]
  - DRUG EXPOSURE DURING PREGNANCY [None]
  - GESTATIONAL DIABETES [None]
  - PREMATURE LABOUR [None]
